FAERS Safety Report 10008664 (Version 1)
Quarter: 2014Q1

REPORT INFORMATION
  Report Type: Spontaneous
  Country: US (occurrence: US)
  Receive Date: 20140312
  Receipt Date: 20140312
  Transmission Date: 20141002
  Serious: Yes (Other)
  Sender: FDA-Public Use
  Company Number: US-INCYTE CORPORATION-2012IN000162

PATIENT
  Age: 75 Year
  Sex: 0

DRUGS (2)
  1. JAKAFI [Suspect]
     Indication: MYELOFIBROSIS
     Dosage: 7.5 MG, BID
     Route: 048
     Dates: end: 201202
  2. LEVOTHYROXINE [Concomitant]

REACTIONS (2)
  - Platelet count decreased [Unknown]
  - Wrong technique in drug usage process [None]
